FAERS Safety Report 7652529-0 (Version None)
Quarter: 2011Q3

REPORT INFORMATION
  Report Type: 
  Country: None (occurrence: None)
  Receive Date: 20110801
  Receipt Date: 20110801
  Transmission Date: 20111222
  Serious: Yes (Life-Threatening, Hospitalization)
  Sender: FDA-Public Use
  Company Number: None

PATIENT
  Sex: Male
  Weight: 89 kg

DRUGS (3)
  1. VISIPAQUE 320 [Suspect]
  2. VISIPAQUE 320 [Suspect]
     Indication: CATHETERISATION CARDIAC
     Dosage: 250ML X1 INTRA-ARTERIALLY (CASE STARTED @ 08:01, REACTION @ 09:05)
     Route: 013
     Dates: start: 20110729
  3. VISIPAQUE 320 [Suspect]

REACTIONS (1)
  - ANAPHYLACTIC SHOCK [None]
